FAERS Safety Report 6150092-7 (Version None)
Quarter: 2009Q2

REPORT INFORMATION
  Report Type: 
  Country: None (occurrence: None)
  Receive Date: 20090409
  Receipt Date: 20090331
  Transmission Date: 20091009
  Serious: Yes (Hospitalization, Disabling, Other)
  Sender: FDA-Public Use
  Company Number: IL-PFIZER INC-2009170020

PATIENT

DRUGS (12)
  1. SUNITINIB MALATE [Suspect]
     Indication: METASTATIC RENAL CELL CARCINOMA
     Dosage: 25 MG, 1X/DAY
     Route: 048
     Dates: start: 20060630, end: 20081123
  2. LEVOTHYROXINE SODIUM [Concomitant]
     Route: 048
     Dates: start: 20050101
  3. LEVOTHYROXINE SODIUM [Concomitant]
     Dosage: 2.5 YEARS
     Route: 048
  4. AMLODIPINE [Concomitant]
     Dosage: 2.5 YEARS
     Route: 048
     Dates: start: 20050501
  5. DOXAZOSIN [Concomitant]
     Dosage: 2 YEARS
     Route: 048
  6. CLONIDINE [Concomitant]
     Route: 048
  7. FUROSEMIDE [Concomitant]
     Route: 048
  8. OMEPRAZOLE [Concomitant]
     Route: 048
  9. CALCIUM [Concomitant]
     Route: 048
  10. NORMOPRESAN [Concomitant]
     Route: 048
  11. ALENDRONATE SODIUM [Concomitant]
     Route: 048
  12. ALLORIL [Concomitant]
     Route: 048
     Dates: start: 20060101

REACTIONS (1)
  - RENAL IMPAIRMENT [None]
